FAERS Safety Report 10334750 (Version 2)
Quarter: 2014Q3

REPORT INFORMATION
  Report Type: Spontaneous
  Country: US (occurrence: US)
  Receive Date: 20140723
  Receipt Date: 20140905
  Transmission Date: 20150326
  Serious: No
  Sender: FDA-Public Use
  Company Number: US-PFIZER INC-2014202825

PATIENT
  Age: 54 Year
  Sex: Male
  Weight: 104.31 kg

DRUGS (3)
  1. VIAGRA [Suspect]
     Active Substance: SILDENAFIL CITRATE
     Dosage: 50 MG (100MG TABLET CUT IN HALF), AS NEEDED
     Route: 048
  2. VIAGRA [Suspect]
     Active Substance: SILDENAFIL CITRATE
     Indication: ERECTILE DYSFUNCTION
     Dosage: 25 MG (50MG TABLET CUT IN HALF), AS NEEDED
     Route: 048
     Dates: start: 2011
  3. VIAGRA [Suspect]
     Active Substance: SILDENAFIL CITRATE
     Dosage: 25 MG (VIAGRA 100MG TABLET CUT INTO QUARTERS), AS NEEDED
     Route: 048

REACTIONS (1)
  - Drug ineffective [Unknown]
